FAERS Safety Report 4322868-X (Version None)
Quarter: 2004Q1

REPORT INFORMATION
  Report Type: 
  Country: None (occurrence: None)
  Receive Date: 20040322
  Receipt Date: 20040308
  Transmission Date: 20041129
  Serious: Yes (Life-Threatening)
  Sender: FDA-Public Use
  Company Number: 2004-113545-NL

PATIENT
  Age: 66 Year
  Sex: Female

DRUGS (4)
  1. ROCURONIUM BROMIDE [Suspect]
     Indication: HYPOTONIA
     Dates: start: 20040224, end: 20040224
  2. PROPOFOL [Concomitant]
  3. REMIFENTANIL HYDROCHLORIDE [Concomitant]
  4. DESFLURANE [Concomitant]

REACTIONS (1)
  - ANAESTHETIC COMPLICATION NEUROLOGICAL [None]
